FAERS Safety Report 7861521-2 (Version None)
Quarter: 2011Q4

REPORT INFORMATION
  Report Type: 
  Country: None (occurrence: None)
  Receive Date: 20111027
  Receipt Date: 20111024
  Transmission Date: 20120403
  Serious: Yes (Hospitalization)
  Sender: FDA-Public Use
  Company Number: BR-B.I. PHARMACEUTICALS,INC./RIDGEFIELD-2011-BR-01168BR

PATIENT
  Age: 44 Year
  Sex: Female

DRUGS (9)
  1. SPIRONOLACTONE [Concomitant]
     Dosage: 25 MG
  2. AMLODIPINE [Concomitant]
     Dosage: 5 MG
  3. ENALAPRIL MALEATE [Concomitant]
     Dosage: 40 MG
  4. CLONIDINE HYDROCHLORIDE [Suspect]
     Dosage: 0.45 MG
  5. FUROSEMIDE [Concomitant]
     Dosage: 80 MG
  6. HYDRALAZINE HCL [Concomitant]
     Dosage: 225 MG
  7. SIMVASTATIN [Concomitant]
     Dosage: 40 MG
  8. METFORMIN HCL [Concomitant]
     Dosage: 2550 MG
  9. METOPROLOL TARTRATE [Concomitant]
     Dosage: 200 MG

REACTIONS (3)
  - MYOCARDIAL ISCHAEMIA [None]
  - ANGINA PECTORIS [None]
  - BLOOD PRESSURE INCREASED [None]
